FAERS Safety Report 6643993-4 (Version None)
Quarter: 2010Q1

REPORT INFORMATION
  Report Type: 
  Country: None (occurrence: None)
  Receive Date: 20100304
  Receipt Date: 20091102
  Transmission Date: 20100710
  Serious: Yes (Other)
  Sender: FDA-Public Use
  Company Number: 20091102CINRY1235

PATIENT
  Age: 7 Year
  Sex: Female

DRUGS (1)
  1. CINRYZE [Suspect]
     Indication: HEREDITARY ANGIOEDEMA
     Dosage: 500 UNIT, AS REQUIRED
     Dates: start: 20090922

REACTIONS (5)
  - ABDOMINAL PAIN UPPER [None]
  - HEADACHE [None]
  - HEREDITARY ANGIOEDEMA [None]
  - OFF LABEL USE [None]
  - VOMITING [None]
